FAERS Safety Report 23259660 (Version 6)
Quarter: 2024Q1

REPORT INFORMATION
  Report Type: Spontaneous
  Country: US (occurrence: US)
  Receive Date: 20231204
  Receipt Date: 20240315
  Transmission Date: 20240409
  Serious: Yes (Other)
  Sender: FDA-Public Use
  Company Number: US-ABBVIE-5516684

PATIENT
  Sex: Female

DRUGS (3)
  1. LUPRON [Suspect]
     Active Substance: LEUPROLIDE ACETATE
     Indication: Fibroma
     Dosage: FORM STRENGTH: 3.75 MILLIGRAM
     Route: 030
     Dates: start: 200301, end: 200306
  2. VITAMIN D [Concomitant]
     Active Substance: VITAMIN D NOS
     Indication: Fibroma
  3. METFORMIN [Concomitant]
     Active Substance: METFORMIN HYDROCHLORIDE
     Indication: Diabetes mellitus

REACTIONS (43)
  - Blindness [Unknown]
  - Immune system disorder [Unknown]
  - Fatigue [Unknown]
  - Urinary tract disorder [Unknown]
  - Unevaluable event [Unknown]
  - Blood pressure abnormal [Unknown]
  - White blood cell count increased [Unknown]
  - Renal injury [Unknown]
  - Diabetes mellitus [Unknown]
  - Liver injury [Unknown]
  - Pain [Unknown]
  - Blood disorder [Unknown]
  - Deafness [Unknown]
  - Alopecia [Unknown]
  - Fibroma [Unknown]
  - Vasodilatation [Unknown]
  - Liver disorder [Unknown]
  - Ear infection [Unknown]
  - Skin disorder [Unknown]
  - Ear pruritus [Unknown]
  - Stress [Unknown]
  - Neuropathy peripheral [Unknown]
  - Pelvic floor dysfunction [Unknown]
  - Ear disorder [Unknown]
  - Splenic injury [Unknown]
  - Burning sensation [Not Recovered/Not Resolved]
  - Gastrointestinal disorder [Unknown]
  - Tooth disorder [Unknown]
  - Eye disorder [Unknown]
  - Adverse drug reaction [Unknown]
  - Arthropathy [Unknown]
  - Illness [Unknown]
  - Infection [Unknown]
  - Surgery [Unknown]
  - Gait inability [Unknown]
  - Nervous system disorder [Unknown]
  - Diet failure [Unknown]
  - Tissue injury [Not Recovered/Not Resolved]
  - Tooth injury [Not Recovered/Not Resolved]
  - Hair injury [Not Recovered/Not Resolved]
  - Hair disorder [Not Recovered/Not Resolved]
  - Nerve injury [Not Recovered/Not Resolved]
  - Bone disorder [Unknown]

NARRATIVE: CASE EVENT DATE: 20190101
